FAERS Safety Report 4785594-9 (Version None)
Quarter: 2005Q4

REPORT INFORMATION
  Report Type: 
  Country: None (occurrence: None)
  Receive Date: 20051003
  Receipt Date: 20050927
  Transmission Date: 20060501
  Serious: Yes (Life-Threatening)
  Sender: FDA-Public Use
  Company Number: PL-GLAXOSMITHKLINE-B0395693A

PATIENT
  Age: 42 Year
  Sex: Female

DRUGS (3)
  1. AUGMENTIN '125' [Suspect]
     Dosage: 2.4G UNKNOWN
     Route: 042
     Dates: start: 20050822, end: 20050823
  2. METRONIDAZOLE [Suspect]
     Route: 065
  3. GENTAMICIN [Suspect]
     Route: 065

REACTIONS (2)
  - DRUG EXPOSURE DURING PREGNANCY [None]
  - SHOCK [None]
